FAERS Safety Report 8119079-9 (Version None)
Quarter: 2012Q1

REPORT INFORMATION
  Report Type: 
  Country: None (occurrence: None)
  Receive Date: 20120207
  Receipt Date: 20120202
  Transmission Date: 20120608
  Serious: No
  Sender: FDA-Public Use
  Company Number: US-PFIZER INC-2012029556

PATIENT
  Sex: Female
  Weight: 63.492 kg

DRUGS (3)
  1. CELEXA [Concomitant]
     Dosage: 40 MG, UNK
  2. METOPROLOL [Concomitant]
     Indication: HYPERTENSION
     Dosage: 25 MG, 1X/DAY
  3. LYRICA [Suspect]
     Indication: FIBROMYALGIA
     Dosage: 50 MG, 2X/DAY
     Route: 048
     Dates: start: 20111220

REACTIONS (4)
  - PAIN [None]
  - HYPERHIDROSIS [None]
  - DRUG INEFFECTIVE [None]
  - UNEVALUABLE EVENT [None]
